FAERS Safety Report 10520796 (Version 2)
Quarter: 2014Q4

REPORT INFORMATION
  Report Type: Spontaneous
  Country: US (occurrence: US)
  Receive Date: 20141015
  Receipt Date: 20141123
  Transmission Date: 20150528
  Serious: Yes (Other)
  Sender: FDA-Public Use
  Company Number: PHEH2014US020364

PATIENT
  Sex: Female

DRUGS (1)
  1. VIVELLE DOT [Suspect]
     Active Substance: ESTRADIOL
     Indication: PRODUCT USED FOR UNKNOWN INDICATION
     Dosage: 0.0375 MG, UNK
     Route: 062

REACTIONS (2)
  - Gait disturbance [Unknown]
  - Wrist fracture [Unknown]
